FAERS Safety Report 8780708 (Version 1)
Quarter: 2012Q4

REPORT INFORMATION
  Report Type: Report from Study
  Country: CA (occurrence: CA)
  Receive Date: 20120913
  Receipt Date: 20120913
  Transmission Date: 20130627
  Serious: Yes (Hospitalization)
  Sender: FDA-Public Use
  Company Number: CA-JNJFOC-20120901636

PATIENT
  Sex: Female
  Weight: 37 kg

DRUGS (2)
  1. REMICADE [Suspect]
     Indication: CROHN^S DISEASE
     Route: 042
     Dates: start: 20120208
  2. METHOTREXATE [Concomitant]
     Dosage: 12.5 weekly
     Route: 065

REACTIONS (1)
  - Tympanic membrane perforation [Unknown]
